FAERS Safety Report 25231556 (Version 1)
Quarter: 2025Q2

REPORT INFORMATION
  Report Type: Report from Study
  Country: PA (occurrence: PA)
  Receive Date: 20250423
  Receipt Date: 20250423
  Transmission Date: 20250717
  Serious: Yes (Other)
  Sender: NOVARTIS
  Company Number: PA-002147023-NVSC2025PA066180

PATIENT
  Age: 79 Year
  Sex: Female

DRUGS (2)
  1. EXFORGE [Suspect]
     Active Substance: AMLODIPINE BESYLATE\VALSARTAN
     Indication: Hypertension
     Dosage: 160 MG, QD (160/5MG)
     Route: 048
     Dates: start: 202410, end: 20250122
  2. EXFORGE [Suspect]
     Active Substance: AMLODIPINE BESYLATE\VALSARTAN
     Dosage: 160 MG, QD (160/10MG)
     Route: 048
     Dates: start: 20250122

REACTIONS (8)
  - Aphonia [Not Recovered/Not Resolved]
  - Blood pressure increased [Recovering/Resolving]
  - Hypotension [Recovering/Resolving]
  - Memory impairment [Not Recovered/Not Resolved]
  - Oropharyngeal pain [Not Recovered/Not Resolved]
  - Throat irritation [Not Recovered/Not Resolved]
  - Cough [Not Recovered/Not Resolved]
  - Dysphagia [Unknown]

NARRATIVE: CASE EVENT DATE: 20250119
